FAERS Safety Report 9590961 (Version 2)
Quarter: 2013Q4

REPORT INFORMATION
  Report Type: Spontaneous
  Country: US (occurrence: US)
  Receive Date: 20131003
  Receipt Date: 20131003
  Transmission Date: 20140711
  Serious: No
  Sender: FDA-Public Use
  Company Number: US-AMGEN-USASP2012074023

PATIENT
  Age: 58 Year
  Sex: Female
  Weight: 155 kg

DRUGS (6)
  1. ENBREL [Suspect]
     Indication: PSORIASIS
     Dosage: 50 MG, 2 TIMES/WK
     Route: 058
  2. PRAVASTATIN [Concomitant]
     Dosage: 40 MG, UNK
  3. METOPROLOL [Concomitant]
     Dosage: 50 MG, ER
  4. VITAMIN D                          /00107901/ [Concomitant]
     Dosage: 50000 UNIT, UNK
  5. RANITIDINE                         /00550802/ [Concomitant]
     Dosage: 150 MG, UNK
  6. POTASSIUM CHLORIDE [Concomitant]
     Dosage: 10 MEQ, CR

REACTIONS (2)
  - Protein total increased [Unknown]
  - C-reactive protein increased [Unknown]
